FAERS Safety Report 24328666 (Version 1)
Quarter: 2024Q3

REPORT INFORMATION
  Report Type: Report from Study
  Country: CA (occurrence: CA)
  Receive Date: 20240917
  Receipt Date: 20240917
  Transmission Date: 20241017
  Serious: Yes (Hospitalization, Other)
  Sender: EISAI
  Company Number: CA-Eisai-EC-2024-174343

PATIENT
  Age: 68 Year
  Sex: Female
  Weight: 89.3 kg

DRUGS (5)
  1. LENVIMA [Suspect]
     Active Substance: LENVATINIB
     Indication: Endometrial cancer
     Dosage: SHE STOPPED THE 20MG FOR 3 DAYS THEN STARTED AGAIN AT 20MG?THERAPY STOPPED SOMEWHERE IN --2023
     Route: 048
     Dates: start: 20230405, end: 2023
  2. LENVIMA [Suspect]
     Active Substance: LENVATINIB
     Dosage: THERAPY STOPPED SOMEWHERE IN --2023
     Route: 048
     Dates: start: 2023, end: 2023
  3. LENVIMA [Suspect]
     Active Substance: LENVATINIB
     Route: 048
     Dates: start: 20230914, end: 202312
  4. LENVIMA [Suspect]
     Active Substance: LENVATINIB
     Route: 048
     Dates: start: 20240111, end: 202403
  5. PEMBROLIZUMAB [Suspect]
     Active Substance: PEMBROLIZUMAB
     Indication: Endometrial cancer
     Route: 042
     Dates: start: 202304, end: 202403

REACTIONS (3)
  - Pneumonitis [Recovering/Resolving]
  - Pulmonary embolism [Unknown]
  - Pneumonia [Recovering/Resolving]

NARRATIVE: CASE EVENT DATE: 20240301
